FAERS Safety Report 25573952 (Version 1)
Quarter: 2025Q3

REPORT INFORMATION
  Report Type: Spontaneous
  Country: EU (occurrence: EU)
  Receive Date: 20250717
  Receipt Date: 20250717
  Transmission Date: 20251021
  Serious: Yes (Hospitalization, Other)
  Sender: ANI
  Company Number: EU-ANIPHARMA-2025-DE-000032

PATIENT
  Age: 82 Year
  Sex: Female
  Weight: 56 kg

DRUGS (37)
  1. ATACAND HCT [Suspect]
     Active Substance: CANDESARTAN CILEXETIL\HYDROCHLOROTHIAZIDE
     Indication: Product used for unknown indication
  2. FENTANYL\ROPIVACAINE [Suspect]
     Active Substance: FENTANYL\ROPIVACAINE
     Route: 050
  3. PANTOPRAZOLE [Suspect]
     Active Substance: PANTOPRAZOLE
  4. EDOXABAN TOSYLATE [Suspect]
     Active Substance: EDOXABAN TOSYLATE
     Dates: start: 20160930
  5. BISOPROLOL FUMARATE [Suspect]
     Active Substance: BISOPROLOL FUMARATE
     Dates: start: 2016
  6. SIMVASTATIN [Suspect]
     Active Substance: SIMVASTATIN
  7. XIPAMIDE [Suspect]
     Active Substance: XIPAMIDE
     Dates: end: 20170124
  8. TORSEMIDE [Suspect]
     Active Substance: TORSEMIDE
     Dates: start: 20170124, end: 20170124
  9. TROSPIUM CHLORIDE [Suspect]
     Active Substance: TROSPIUM CHLORIDE
  10. CLOPIDOGREL [Suspect]
     Active Substance: CLOPIDOGREL BISULFATE
     Route: 048
     Dates: end: 20170124
  11. AMIODARONE HYDROCHLORIDE [Suspect]
     Active Substance: AMIODARONE HYDROCHLORIDE
  12. METOPROLOL SUCCINATE [Suspect]
     Active Substance: METOPROLOL SUCCINATE
     Route: 048
     Dates: start: 20170124
  13. HUMIRA [Suspect]
     Active Substance: ADALIMUMAB
     Route: 058
     Dates: start: 20120111, end: 20160927
  14. CHOLECALCIFEROL [Suspect]
     Active Substance: CHOLECALCIFEROL
  15. HYDROCHLOROTHIAZIDE\LOSARTAN [Suspect]
     Active Substance: HYDROCHLOROTHIAZIDE\LOSARTAN
     Dates: start: 2016
  16. MOVICOL [Suspect]
     Active Substance: POLYETHYLENE GLYCOL 3350\POTASSIUM CHLORIDE\SODIUM BICARBONATE\SODIUM CHLORIDE
     Dates: start: 20170124
  17. PREDNISOLONE [Suspect]
     Active Substance: PREDNISOLONE
  18. FUROSEMIDE\SPIRONOLACTONE [Suspect]
     Active Substance: FUROSEMIDE\SPIRONOLACTONE
     Dates: start: 201610, end: 201610
  19. VALSARTAN [Suspect]
     Active Substance: VALSARTAN
  20. LACTULOSE [Suspect]
     Active Substance: LACTULOSE
     Dates: start: 20170124, end: 20170124
  21. DICLOFENAC [Suspect]
     Active Substance: DICLOFENAC
     Dates: start: 201610, end: 201610
  22. DICLOFENAC SODIUM [Suspect]
     Active Substance: DICLOFENAC SODIUM
     Dates: start: 201610, end: 201610
  23. ASPIRIN [Suspect]
     Active Substance: ASPIRIN
     Route: 048
  24. CLOPIDOGREL BISULFATE [Suspect]
     Active Substance: CLOPIDOGREL BISULFATE
     Dates: end: 20170124
  25. FENTANYL [Suspect]
     Active Substance: FENTANYL
     Route: 050
  26. LOSARTAN [Suspect]
     Active Substance: LOSARTAN
     Dates: start: 2016
  27. FENTANYL\ROPIVACAINE [Suspect]
     Active Substance: FENTANYL\ROPIVACAINE
  28. ENOXAPARIN [Concomitant]
     Active Substance: ENOXAPARIN
  29. TORSEMIDE [Concomitant]
     Active Substance: TORSEMIDE
  30. Riopan [Concomitant]
     Route: 048
  31. TORSEMIDE [Concomitant]
     Active Substance: TORSEMIDE
  32. MAGALDRATE [Concomitant]
     Active Substance: MAGALDRATE
  33. SODIUM CHLORIDE [Concomitant]
     Active Substance: SODIUM CHLORIDE
  34. FOLIC ACID [Concomitant]
     Active Substance: FOLIC ACID
     Dates: start: 20170124
  35. NADROPARIN CALCIUM [Concomitant]
     Active Substance: NADROPARIN CALCIUM
  36. CORDAREX [Concomitant]
     Active Substance: AMIODARONE
  37. LEVOSIMENDAN [Concomitant]
     Active Substance: LEVOSIMENDAN
     Dates: start: 201611, end: 201611

REACTIONS (60)
  - Groin pain [Unknown]
  - Eructation [Unknown]
  - Pulmonary hypertension [Unknown]
  - Hiatus hernia [Unknown]
  - Inflammatory marker increased [Recovered/Resolved]
  - Hepatic cyst [Unknown]
  - Gait disturbance [Unknown]
  - Coronary artery disease [Unknown]
  - Decreased appetite [Unknown]
  - Urinary tract infection [Unknown]
  - Acute kidney injury [Unknown]
  - Hyperkalaemia [Unknown]
  - Aplastic anaemia [Unknown]
  - Urinary retention [Unknown]
  - Wound dehiscence [Recovered/Resolved]
  - Osteopenia [Recovered/Resolved]
  - Arterial haemorrhage [Recovered/Resolved]
  - Diverticulum intestinal [Unknown]
  - Pancreatic steatosis [Unknown]
  - Escherichia infection [Unknown]
  - Myocardial infarction [Recovered/Resolved]
  - Haemarthrosis [Unknown]
  - Tricuspid valve incompetence [Unknown]
  - Myelodysplastic syndrome [Unknown]
  - Hyponatraemia [Unknown]
  - Joint dislocation [Unknown]
  - Impaired healing [Recovered/Resolved]
  - Haematuria [Unknown]
  - Aortic arteriosclerosis [Unknown]
  - General physical health deterioration [Unknown]
  - Peripheral swelling [Recovered/Resolved]
  - Gastrointestinal haemorrhage [Recovered/Resolved]
  - Cardiogenic shock [Unknown]
  - Vomiting [Unknown]
  - Faecaloma [Unknown]
  - Left ventricular dysfunction [Recovered/Resolved]
  - Abdominal discomfort [Unknown]
  - Arthralgia [Unknown]
  - Femoral hernia incarcerated [Recovered/Resolved]
  - Dyspepsia [Unknown]
  - Fall [Unknown]
  - Oedema peripheral [Unknown]
  - Mitral valve incompetence [Unknown]
  - Anuria [Recovered/Resolved]
  - Joint dislocation [Unknown]
  - Dyspnoea [Unknown]
  - Wound infection pseudomonas [Unknown]
  - Postoperative wound infection [Recovered/Resolved]
  - Tachyarrhythmia [Unknown]
  - Escherichia infection [Unknown]
  - Joint dislocation [Recovered/Resolved]
  - Aortic valve stenosis [Unknown]
  - Cardiovascular disorder [Unknown]
  - Pancreatic steatosis [Unknown]
  - Diverticulum intestinal [Unknown]
  - Anaemia [Recovered/Resolved]
  - Haematuria [Unknown]
  - Gastrointestinal haemorrhage [Unknown]
  - Lymphatic fistula [Recovered/Resolved]
  - Seroma [Unknown]

NARRATIVE: CASE EVENT DATE: 20160301
